FAERS Safety Report 8842639 (Version 3)
Quarter: 2012Q4

REPORT INFORMATION
  Report Type: 
  Country: US (occurrence: US)
  Receive Date: 20121016
  Receipt Date: 20121203
  Transmission Date: 20130627
  Serious: Yes (Other)
  Sender: FDA-Public Use
  Company Number: US-PFIZER INC-2012251699

PATIENT
  Age: 57 Year
  Sex: Male
  Weight: 68.03 kg

DRUGS (1)
  1. XALATAN [Suspect]
     Indication: GLAUCOMA
     Dosage: 1 Gtt in left eye, daily at night
     Route: 047
     Dates: start: 20100301, end: 2011

REACTIONS (1)
  - Intraocular pressure increased [Not Recovered/Not Resolved]
